FAERS Safety Report 17534387 (Version 2)
Quarter: 2020Q1

REPORT INFORMATION
  Report Type: Spontaneous
  Country: GB (occurrence: GB)
  Receive Date: 20200312
  Receipt Date: 20200330
  Transmission Date: 20200409
  Serious: Yes (Other)
  Sender: FDA-Public Use
  Company Number: GB-ROCHE-2564636

PATIENT
  Age: 9 Year
  Sex: Female

DRUGS (7)
  1. LACTULOSE. [Concomitant]
     Active Substance: LACTULOSE
  2. SALMETEROL [Concomitant]
     Active Substance: SALMETEROL
     Route: 065
     Dates: start: 20190401
  3. CASSIA SENNA [Concomitant]
     Active Substance: HERBALS\SENNOSIDES
  4. CLENIL MODULITE [Concomitant]
     Active Substance: BECLOMETHASONE DIPROPIONATE
     Route: 065
  5. SOMATROPIN. [Suspect]
     Active Substance: SOMATROPIN
     Indication: GROWTH RETARDATION
     Route: 058
     Dates: start: 20180418
  6. AZITHROMYCIN ANHYDROUS. [Concomitant]
     Active Substance: AZITHROMYCIN ANHYDROUS
     Dosage: WEEKLY, 5 TIMES WEEKLY IF UNWELL
     Route: 065
  7. SALBUTAMOL [Concomitant]
     Active Substance: ALBUTEROL
     Dosage: (4 TO 6 PUFFS UP TO EVERY 4 HOURS)
     Route: 065

REACTIONS (6)
  - Off label use [Unknown]
  - Condition aggravated [Recovered/Resolved]
  - Intentional product use issue [Unknown]
  - Stress fracture [Recovered/Resolved]
  - Pain in extremity [Recovered/Resolved]
  - Granuloma [Recovered/Resolved]

NARRATIVE: CASE EVENT DATE: 20180918
